FAERS Safety Report 20471574 (Version 3)
Quarter: 2022Q1

REPORT INFORMATION
  Report Type: Spontaneous
  Country: US (occurrence: US)
  Receive Date: 20220214
  Receipt Date: 20220223
  Transmission Date: 20220423
  Serious: No
  Sender: FDA-Public Use
  Company Number: US-SA-SAC20220210000410

PATIENT
  Age: 29 Year
  Sex: Male

DRUGS (1)
  1. DUPIXENT [Suspect]
     Active Substance: DUPILUMAB
     Indication: Dermatitis atopic
     Dosage: DOSAGE/ UNIT/ FREQUENCY/ AMOUNT: INJECT ONE PEN UNDER THE SKIN ONCE EVERY 14 DAYS
     Route: 058
     Dates: start: 20210825

REACTIONS (1)
  - Injection site pain [Unknown]
